FAERS Safety Report 7453375-3 (Version None)
Quarter: 2011Q2

REPORT INFORMATION
  Report Type: 
  Country: None (occurrence: None)
  Receive Date: 20110502
  Receipt Date: 20110425
  Transmission Date: 20111010
  Serious: Yes (Other)
  Sender: FDA-Public Use
  Company Number: CHPA2011US05960

PATIENT
  Age: 37 Year
  Sex: Male
  Weight: 117.91 kg

DRUGS (2)
  1. PRIVATE LABEL [Suspect]
     Indication: SMOKING CESSATION THERAPY
     Dosage: 14 MG, QD
     Route: 062
     Dates: start: 20110422
  2. PRIVATE LABEL [Suspect]
     Dosage: 21 MG, QD
     Route: 062

REACTIONS (9)
  - SOMNOLENCE [None]
  - CONVULSION [None]
  - LOSS OF CONSCIOUSNESS [None]
  - CONCOMITANT DISEASE AGGRAVATED [None]
  - VOMITING [None]
  - NAUSEA [None]
  - ASTHENIA [None]
  - DIARRHOEA [None]
  - DRUG EFFECT INCREASED [None]
